FAERS Safety Report 8765382 (Version 2)
Quarter: 2012Q4

REPORT INFORMATION
  Report Type: 
  Country: DE (occurrence: DE)
  Receive Date: 20120824
  Receipt Date: 20121115
  Transmission Date: 20130627
  Serious: Yes (Life-Threatening, Hospitalization)
  Sender: FDA-Public Use
  Company Number: DE-ELI_LILLY_AND_COMPANY-DE201208007078

PATIENT
  Age: 64 Year
  Sex: Female

DRUGS (3)
  1. CYMBALTA [Suspect]
     Indication: DEPRESSION
     Dosage: 30 mg, unknown
     Route: 048
  2. CYMBALTA [Suspect]
     Dosage: 60 mg, unknown
     Route: 048
  3. FLUANXOL [Concomitant]
     Dosage: 0.5 mg, UNK

REACTIONS (1)
  - Anaphylactic shock [Not Recovered/Not Resolved]
